FAERS Safety Report 20355926 (Version 1)
Quarter: 2022Q1

REPORT INFORMATION
  Report Type: Spontaneous
  Country: US (occurrence: US)
  Receive Date: 20220120
  Receipt Date: 20220120
  Transmission Date: 20220423
  Serious: Yes (Death)
  Sender: FDA-Public Use
  Company Number: US-PFIZER INC-202200050091

PATIENT
  Sex: Male

DRUGS (1)
  1. KETAMINE HYDROCHLORIDE [Suspect]
     Active Substance: KETAMINE HYDROCHLORIDE
     Dosage: UNK

REACTIONS (1)
  - Intentional product misuse [Fatal]
